FAERS Safety Report 8474210-0 (Version None)
Quarter: 2012Q2

REPORT INFORMATION
  Report Type: 
  Country: None (occurrence: None)
  Receive Date: 20120628
  Receipt Date: 20120620
  Transmission Date: 20120825
  Serious: Yes (Hospitalization)
  Sender: FDA-Public Use
  Company Number: US-BAYER-2012-006414

PATIENT
  Age: 49 Year
  Sex: Female
  Weight: 63.492 kg

DRUGS (6)
  1. COLACE [Concomitant]
  2. ASPIRIN [Concomitant]
  3. CYMBALTA [Concomitant]
     Indication: DEPRESSION
     Dosage: UNK
     Dates: start: 20071001
  4. AMERGE [Concomitant]
     Indication: MIGRAINE
     Dosage: UNK
     Dates: start: 20071101
  5. VITAMIN TAB [Concomitant]
  6. YAZ [Suspect]
     Indication: MENSTRUAL DISORDER
     Dates: start: 20070917, end: 20080830

REACTIONS (1)
  - DEEP VEIN THROMBOSIS [None]
